FAERS Safety Report 9059732 (Version 2)
Quarter: 2013Q2

REPORT INFORMATION
  Report Type: Spontaneous
  Country: CA (occurrence: CA)
  Receive Date: 20130211
  Receipt Date: 20130610
  Transmission Date: 20140414
  Serious: Yes (Other)
  Sender: FDA-Public Use
  Company Number: CA-ELI_LILLY_AND_COMPANY-CA201302000410

PATIENT
  Age: 82 Year
  Sex: Male

DRUGS (7)
  1. CIALIS [Suspect]
     Indication: BENIGN PROSTATIC HYPERPLASIA
     Dosage: 5 MG, QOD
     Route: 065
  2. FLOMAX [Interacting]
     Indication: BENIGN PROSTATIC HYPERPLASIA
     Dosage: 0.4 MG, QD
     Route: 065
  3. VERAPAMIL [Interacting]
     Dosage: 180 MG, EACH MORNING
     Route: 065
  4. ASPIRIN [Concomitant]
     Dosage: 81 MG, EACH MORNING
     Route: 065
  5. GLUCOSAMINE [Concomitant]
     Dosage: 1 DF, UNKNOWN
     Route: 065
  6. OMEGA-3 TRIGLYCERIDES W/VITAMIN D NOS/XANTOF. [Concomitant]
     Dosage: 1 DF, UNKNOWN
     Route: 065
  7. MULTIVITAMIN [Concomitant]
     Dosage: 1 DF, UNKNOWN
     Route: 065

REACTIONS (3)
  - Blood pressure increased [Not Recovered/Not Resolved]
  - Heart rate decreased [Not Recovered/Not Resolved]
  - Drug interaction [Not Recovered/Not Resolved]
